FAERS Safety Report 7424078-6 (Version None)
Quarter: 2011Q2

REPORT INFORMATION
  Report Type: 
  Country: None (occurrence: None)
  Receive Date: 20110419
  Receipt Date: 20110412
  Transmission Date: 20111010
  Serious: Yes (Other)
  Sender: FDA-Public Use
  Company Number: US-ELI_LILLY_AND_COMPANY-US201104003854

PATIENT
  Sex: Male

DRUGS (2)
  1. HUMALOG [Suspect]
     Indication: DIABETES MELLITUS
     Dosage: UNK, UNKNOWN
     Route: 065
  2. HUMALOG [Suspect]
     Dosage: UNK, UNKNOWN
     Route: 065
     Dates: start: 20110411

REACTIONS (4)
  - BLINDNESS [None]
  - INJURY ASSOCIATED WITH DEVICE [None]
  - INJECTION SITE HAEMORRHAGE [None]
  - SKIN INJURY [None]
